FAERS Safety Report 11575827 (Version 1)
Quarter: 2015Q3

REPORT INFORMATION
  Report Type: Spontaneous
  Country: US (occurrence: None)
  Receive Date: 20150929
  Receipt Date: 20150929
  Transmission Date: 20151125
  Serious: Yes (Hospitalization, Disabling)
  Sender: FDA-Public Use
  Company Number: None

PATIENT
  Age: 59 Year
  Sex: Female
  Weight: 98.43 kg

DRUGS (10)
  1. VITAMIN D [Concomitant]
     Active Substance: CHOLECALCIFEROL
  2. VANCOMYCIN [Suspect]
     Active Substance: VANCOMYCIN
     Indication: PSEUDOMONAS INFECTION
     Dates: start: 20140207, end: 20140207
  3. POTASSIUM [Concomitant]
     Active Substance: POTASSIUM
  4. NORCO [Concomitant]
     Active Substance: ACETAMINOPHEN\HYDROCODONE BITARTRATE
  5. COREG [Concomitant]
     Active Substance: CARVEDILOL
  6. ZOFRAN [Concomitant]
     Active Substance: ONDANSETRON HYDROCHLORIDE
  7. B12 SHOT [Concomitant]
  8. CPAP [Concomitant]
     Active Substance: DEVICE
  9. LASIX [Concomitant]
     Active Substance: FUROSEMIDE
  10. MULTI VITAMIN [Concomitant]
     Active Substance: VITAMINS

REACTIONS (7)
  - Nausea [None]
  - Inner ear disorder [None]
  - Dizziness [None]
  - Impaired driving ability [None]
  - Dysstasia [None]
  - Fall [None]
  - Social problem [None]

NARRATIVE: CASE EVENT DATE: 20140122
